FAERS Safety Report 7481595-0 (Version None)
Quarter: 2011Q2

REPORT INFORMATION
  Report Type: 
  Country: None (occurrence: None)
  Receive Date: 20110516
  Receipt Date: 20110208
  Transmission Date: 20111010
  Serious: Yes (Other)
  Sender: FDA-Public Use
  Company Number: IE-ROCHE-744541

PATIENT
  Sex: Female

DRUGS (5)
  1. IDEOS [Concomitant]
     Indication: OSTEOPOROSIS
     Dosage: FREQ: BD.
     Route: 048
     Dates: start: 20090101
  2. SIMVASTATIN [Concomitant]
     Route: 048
     Dates: start: 20060101
  3. ISTIN [Concomitant]
     Route: 048
     Dates: start: 20070101
  4. OMEPRAZOLE [Concomitant]
     Route: 048
     Dates: start: 20090901
  5. BONIVA [Suspect]
     Indication: OSTEOPOROSIS
     Route: 048
     Dates: start: 20090224, end: 20110101

REACTIONS (2)
  - TOOTH FRACTURE [None]
  - SURGICAL FAILURE [None]
